FAERS Safety Report 6165631-X (Version None)
Quarter: 2009Q2

REPORT INFORMATION
  Report Type: 
  Country: None (occurrence: None)
  Receive Date: 20090423
  Receipt Date: 20090401
  Transmission Date: 20091009
  Serious: Yes (Disabling, Other)
  Sender: FDA-Public Use
  Company Number: GR-ROCHE-625635

PATIENT
  Age: 45 Year
  Sex: Female

DRUGS (2)
  1. BONIVA [Suspect]
     Indication: OSTEOPOROSIS
     Dosage: FORM REPORTED: FC TABLET
     Route: 048
     Dates: start: 20090327
  2. IDEOS [Concomitant]
     Indication: OSTEOPENIA
     Dosage: FORM: CHEWABLE TABLETS
     Route: 048

REACTIONS (3)
  - BONE PAIN [None]
  - FLATULENCE [None]
  - PARALYSIS [None]
